FAERS Safety Report 6469424-5 (Version None)
Quarter: 2009Q4

REPORT INFORMATION
  Report Type: 
  Country: None (occurrence: None)
  Receive Date: 20091203
  Receipt Date: 20091201
  Transmission Date: 20100525
  Serious: No
  Sender: FDA-Public Use
  Company Number: US-B.I. PHARMACEUTICALS,INC./RIDGEFIELD-2009-BP-12796BP

PATIENT
  Sex: Male

DRUGS (23)
  1. SPIRIVA [Suspect]
     Indication: CHRONIC OBSTRUCTIVE PULMONARY DISEASE
     Dosage: 18 MCG
     Route: 055
     Dates: start: 20090401
  2. SIMVASTATIN [Concomitant]
     Indication: BLOOD CHOLESTEROL
  3. ALLOPURINOL [Concomitant]
     Indication: GOUT
  4. FUROSEMIDE [Concomitant]
     Indication: FLUID RETENTION
     Dosage: 40 MG
  5. K-TAB [Concomitant]
     Indication: MINERAL SUPPLEMENTATION
  6. METOPROLOL TARTRATE [Concomitant]
     Indication: BLOOD PRESSURE
     Dosage: 50 MG
  7. METOPROLOL TARTRATE [Concomitant]
     Indication: CARDIAC DISORDER
  8. GABAPENTIN [Concomitant]
     Indication: NEUROPATHY PERIPHERAL
     Dosage: 1800 MG
  9. QVAR 40 [Concomitant]
     Indication: CHRONIC OBSTRUCTIVE PULMONARY DISEASE
     Route: 055
  10. PRO-AIR [Concomitant]
     Indication: CHRONIC OBSTRUCTIVE PULMONARY DISEASE
     Route: 055
  11. OMEPRAZOLE [Concomitant]
     Indication: DYSPEPSIA
     Dosage: 20 MG
  12. WARFARIN SODIUM [Concomitant]
     Indication: ANTICOAGULANT THERAPY
  13. FLUTICASONE [Concomitant]
     Indication: HYPERSENSITIVITY
     Dosage: 100 MCG
     Route: 045
  14. NITROGLYCERIN [Concomitant]
     Indication: CHEST PAIN
     Route: 060
  15. DIPHENOXYLATE HCL + ATROPINE SULFATE [Concomitant]
     Indication: DIARRHOEA
  16. ASPIRIN [Concomitant]
     Indication: PROPHYLAXIS
     Dosage: 81 MG
  17. MUCINEX DM [Concomitant]
     Indication: INCREASED VISCOSITY OF BRONCHIAL SECRETION
  18. SAW PALMETTO [Concomitant]
     Indication: PROSTATIC DISORDER
  19. FISH OIL [Concomitant]
     Indication: BLOOD CHOLESTEROL
     Dosage: 1200 MG
  20. FISH OIL [Concomitant]
     Indication: CARDIAC DISORDER
  21. FIBER [Concomitant]
     Indication: CONSTIPATION
  22. LORATADINE [Concomitant]
     Indication: HYPERSENSITIVITY
     Dosage: 10 MG
  23. MAGNESIUM OXIDE [Concomitant]
     Dosage: 400 MG

REACTIONS (1)
  - DRUG INEFFECTIVE [None]
